FAERS Safety Report 15590620 (Version 1)
Quarter: 2018Q4

REPORT INFORMATION
  Report Type: Spontaneous
  Country: NO (occurrence: NO)
  Receive Date: 20181106
  Receipt Date: 20181106
  Transmission Date: 20190205
  Serious: Yes (Life-Threatening, Hospitalization, Other)
  Sender: FDA-Public Use
  Company Number: NO-NOVOPROD-630552

PATIENT
  Age: 63 Year
  Sex: Female

DRUGS (10)
  1. SIMVASTATIN. [Concomitant]
     Active Substance: SIMVASTATIN
     Dosage: 20 MG, QD
  2. FELODIPINE. [Suspect]
     Active Substance: FELODIPINE
     Indication: PRODUCT USED FOR UNKNOWN INDICATION
     Dosage: 10 MG, QD
     Route: 048
  3. NEURONTIN [Concomitant]
     Active Substance: GABAPENTIN
     Dosage: 600 MG EVERY 8 HOUR (X3 PER DAY)
  4. COUMADIN [Concomitant]
     Active Substance: WARFARIN SODIUM
     Dosage: 2.5 MG AFTER LIST
  5. ISOPHANE INSULIN [Suspect]
     Active Substance: INSULIN NOS
     Indication: PRODUCT USED FOR UNKNOWN INDICATION
     Dosage: 18 + 16 IU
     Route: 065
  6. MICARDIS PLUS [Suspect]
     Active Substance: HYDROCHLOROTHIAZIDE\TELMISARTAN
     Indication: PRODUCT USED FOR UNKNOWN INDICATION
     Dosage: 12.5/80 MG,1X DAY
     Route: 065
  7. ATENOLOL. [Suspect]
     Active Substance: ATENOLOL
     Indication: PRODUCT USED FOR UNKNOWN INDICATION
     Dosage: 50 MG, QD
     Route: 065
  8. ERY-MAX                            /00020901/ [Suspect]
     Active Substance: ERYTHROMYCIN
     Indication: RESPIRATORY TRACT INFECTION
     Dosage: 500 MG, EVERY 8 HOURS (500 MGX3)
     Route: 065
  9. GLUCOPHAGE [Suspect]
     Active Substance: METFORMIN HYDROCHLORIDE
     Indication: PRODUCT USED FOR UNKNOWN INDICATION
     Dosage: 1000 MG PER 12 HOURS (X2 PER DAY)
     Route: 065
  10. ALBYL-E [Concomitant]
     Active Substance: ASPIRIN\MAGNESIUM OXIDE
     Dosage: 75 MG, QD

REACTIONS (8)
  - Acute kidney injury [Recovering/Resolving]
  - Hypoglycaemia [Recovering/Resolving]
  - Lactic acidosis [Recovering/Resolving]
  - Hypotension [Recovering/Resolving]
  - Sinus bradycardia [Recovering/Resolving]
  - Hypothermia [Recovering/Resolving]
  - Drug interaction [Recovering/Resolving]
  - Hyperkalaemia [Not Recovered/Not Resolved]
